FAERS Safety Report 9271693 (Version 2)
Quarter: 2013Q2

REPORT INFORMATION
  Report Type: Spontaneous
  Country: IT (occurrence: IT)
  Receive Date: 20130506
  Receipt Date: 20130514
  Transmission Date: 20140414
  Serious: Yes (Other)
  Sender: FDA-Public Use
  Company Number: IT-PFIZER INC-2013139520

PATIENT
  Age: 76 Year
  Sex: Male

DRUGS (6)
  1. CAMPTO [Suspect]
     Indication: COLON CANCER
     Dosage: 240 MG, CYCLIC
     Route: 042
     Dates: start: 20120606, end: 20130227
  2. FLUOROURACIL [Concomitant]
     Dosage: 3200 MG, TOTAL
     Route: 042
  3. FOLINIC ACID [Concomitant]
     Dosage: 260 MG, TOTAL
     Route: 042
  4. ERBITUX [Concomitant]
     Dosage: 330 MG, UNK
     Route: 042
  5. URBASON [Concomitant]
  6. ACIDO FOLICO [Concomitant]

REACTIONS (1)
  - Tongue paralysis [Recovered/Resolved]
